FAERS Safety Report 5011900-6 (Version None)
Quarter: 2006Q2

REPORT INFORMATION
  Report Type: 
  Country: None (occurrence: None)
  Receive Date: 20060524
  Receipt Date: 20060524
  Transmission Date: 20061013
  Serious: No
  Sender: FDA-Public Use
  Company Number: None

PATIENT
  Age: 58 Year

DRUGS (4)
  1. HYDROMORPHONE HCL [Suspect]
     Indication: LITHOTRIPSY
     Dosage: 2 MG IM + 1 MG IV
     Route: 030
  2. HYDROMORPHONE HCL [Suspect]
     Indication: PAIN
     Dosage: 2 MG IM + 1 MG IV
     Route: 030
  3. PROMETHAZINE [Suspect]
     Dosage: 25 MG IM + 12.5 IV
     Route: 030
  4. VALIUM [Suspect]
     Dosage: 10MG PO
     Route: 048

REACTIONS (3)
  - OXYGEN SATURATION DECREASED [None]
  - POST PROCEDURAL COMPLICATION [None]
  - RESPIRATORY RATE DECREASED [None]
